FAERS Safety Report 9709778 (Version 2)
Quarter: 2014Q1

REPORT INFORMATION
  Report Type: Spontaneous
  Country: GB (occurrence: GB)
  Receive Date: 20131126
  Receipt Date: 20140228
  Transmission Date: 20141002
  Serious: Yes (Other)
  Sender: FDA-Public Use
  Company Number: GB-ACCORD-020393

PATIENT
  Age: 62 Year
  Sex: Male

DRUGS (6)
  1. NALTREXONE/NALTREXONE HYDROCHLORIDE [Suspect]
     Indication: ALCOHOLISM
     Route: 048
     Dates: start: 20131022, end: 20131028
  2. DIAZEPAM [Concomitant]
  3. FLUDROCORTISONE [Concomitant]
  4. THIAMINE [Concomitant]
  5. PABRINEX [Concomitant]
  6. VENLAFAXINE/VENLAFAXINE HYDROCHLORIDE [Concomitant]

REACTIONS (2)
  - Ventricular fibrillation [Recovering/Resolving]
  - Cardiac failure [Recovered/Resolved]
